FAERS Safety Report 7542363-4 (Version None)
Quarter: 2011Q2

REPORT INFORMATION
  Report Type: 
  Country: None (occurrence: None)
  Receive Date: 20110524
  Receipt Date: 20110217
  Transmission Date: 20111010
  Serious: No
  Sender: FDA-Public Use
  Company Number: 025873

PATIENT
  Sex: Female

DRUGS (1)
  1. CIMZIA [Suspect]
     Indication: CROHN'S DISEASE
     Dosage: SUBCUTANEOUS
     Route: 058
     Dates: start: 20091230

REACTIONS (5)
  - SINUSITIS [None]
  - TEARFULNESS [None]
  - PROCEDURAL PAIN [None]
  - FREQUENT BOWEL MOVEMENTS [None]
  - INSOMNIA [None]
